FAERS Safety Report 23511520 (Version 2)
Quarter: 2024Q1

REPORT INFORMATION
  Report Type: Spontaneous
  Country: CH (occurrence: CH)
  Receive Date: 20240212
  Receipt Date: 20240221
  Transmission Date: 20240410
  Serious: Yes (Hospitalization, Other)
  Sender: FDA-Public Use
  Company Number: None

PATIENT
  Age: 74 Year
  Sex: Male

DRUGS (8)
  1. NIVOLUMAB [Suspect]
     Active Substance: NIVOLUMAB
     Indication: Clear cell renal cell carcinoma
     Dosage: IN TOTAL
     Route: 042
     Dates: start: 20231029, end: 20231029
  2. IPILIMUMAB [Suspect]
     Active Substance: IPILIMUMAB
     Indication: Clear cell renal cell carcinoma
     Dosage: IN TOTAL
     Route: 042
     Dates: start: 20231029, end: 20231029
  3. PIPERACILLIN AND TAZOBACTAM [Suspect]
     Active Substance: PIPERACILLIN SODIUM\TAZOBACTAM SODIUM
     Indication: Superinfection bacterial
     Route: 042
     Dates: start: 20231109, end: 20231127
  4. AMOXICILLIN\CLAVULANIC ACID [Suspect]
     Active Substance: AMOXICILLIN\CLAVULANIC ACID
     Indication: Superinfection bacterial
     Route: 042
     Dates: start: 20231127, end: 20231206
  5. ACETAMINOPHEN [Concomitant]
     Active Substance: ACETAMINOPHEN
     Indication: Product used for unknown indication
     Dosage: 3X/J ; AS NECESSARY
     Dates: start: 20231005
  6. URISPAS [Concomitant]
     Active Substance: FLAVOXATE HYDROCHLORIDE
     Indication: Product used for unknown indication
     Dates: start: 20231119, end: 20231121
  7. LORAZEPAM [Concomitant]
     Active Substance: LORAZEPAM
     Indication: Product used for unknown indication
     Dosage: 2X/J 1 DOSE LE LE 17.11.23 ; AS NECESSARY
  8. LORAZEPAM [Concomitant]
     Active Substance: LORAZEPAM
     Dosage: 2X/J 1 DOSE LE LE 17.11.23 ; IN TOTAL
     Dates: start: 20231117, end: 20231117

REACTIONS (2)
  - Agranulocytosis [Recovered/Resolved]
  - Off label use [Unknown]

NARRATIVE: CASE EVENT DATE: 20231204
